FAERS Safety Report 9230792 (Version 2)
Quarter: 2013Q4

REPORT INFORMATION
  Report Type: Spontaneous
  Country: US (occurrence: US)
  Receive Date: 20130415
  Receipt Date: 20131114
  Transmission Date: 20140711
  Serious: Yes (Other)
  Sender: FDA-Public Use
  Company Number: US-OTSUKA-US-2013-10633

PATIENT
  Age: 6 Year
  Sex: Female

DRUGS (2)
  1. BUSULFEX [Suspect]
     Dosage: UNK
     Route: 042
  2. MELPHALAN [Suspect]
     Dosage: 140 MG/M2, SINGLE
     Route: 042

REACTIONS (2)
  - Mucosal inflammation [Recovered/Resolved]
  - Disease recurrence [Unknown]
